FAERS Safety Report 7668858-0 (Version None)
Quarter: 2011Q3

REPORT INFORMATION
  Report Type: 
  Country: None (occurrence: None)
  Receive Date: 20110808
  Receipt Date: 20110802
  Transmission Date: 20111222
  Serious: Yes (Other)
  Sender: FDA-Public Use
  Company Number: US-PFIZER INC-2011177274

PATIENT
  Sex: Female

DRUGS (6)
  1. FIORICET [Suspect]
     Indication: MIGRAINE
     Dosage: UNK
  2. KLONOPIN [Suspect]
     Dosage: UNK
  3. REGLAN [Suspect]
     Dosage: UNK
  4. PRISTIQ [Suspect]
     Dosage: UNK
  5. LEXAPRO [Suspect]
     Dosage: UNK
  6. CYMBALTA [Suspect]
     Indication: HEADACHE
     Dosage: 4 TABLETS IN THE MORNING

REACTIONS (2)
  - TREMOR [None]
  - DEPRESSION [None]
